FAERS Safety Report 13958680 (Version 1)
Quarter: 2017Q3

REPORT INFORMATION
  Report Type: Spontaneous
  Country: US (occurrence: US)
  Receive Date: 20170911
  Receipt Date: 20170911
  Transmission Date: 20171128
  Serious: No
  Sender: FDA-Public Use
  Company Number: US-ROCHE-1068379

PATIENT
  Sex: Female

DRUGS (1)
  1. RITUXAN [Suspect]
     Active Substance: RITUXIMAB
     Indication: NEOPLASM MALIGNANT
     Route: 065

REACTIONS (6)
  - Post procedural haemorrhage [Unknown]
  - Dry skin [Unknown]
  - Skin hypertrophy [Unknown]
  - Skin exfoliation [Unknown]
  - Swelling [Unknown]
  - Pruritus [Unknown]
